FAERS Safety Report 18068700 (Version 3)
Quarter: 2020Q3

REPORT INFORMATION
  Report Type: Spontaneous
  Country: TR (occurrence: TR)
  Receive Date: 20200724
  Receipt Date: 20200806
  Transmission Date: 20201103
  Serious: Yes (Life-Threatening, Hospitalization, Other)
  Sender: FDA-Public Use
  Company Number: TR-PFIZER INC-2020280221

PATIENT
  Age: 21 Year
  Sex: Male

DRUGS (3)
  1. IBUPROFEN. [Suspect]
     Active Substance: IBUPROFEN
     Indication: MYOCARDITIS
     Dosage: UNK
  2. COLCHICINE. [Concomitant]
     Active Substance: COLCHICINE
     Indication: MYOCARDITIS
     Dosage: UNK
  3. OMEPRAZOLE. [Concomitant]
     Active Substance: OMEPRAZOLE
     Indication: MYOCARDITIS
     Dosage: UNK

REACTIONS (9)
  - Coronary artery thrombosis [Recovering/Resolving]
  - Coronary artery occlusion [Recovering/Resolving]
  - Coronary artery dissection [Recovering/Resolving]
  - Electrocardiogram ST segment elevation [Recovering/Resolving]
  - Atherosclerotic plaque rupture [Recovering/Resolving]
  - Arteriospasm coronary [Recovering/Resolving]
  - Condition aggravated [Recovering/Resolving]
  - Acute myocardial infarction [Recovering/Resolving]
  - Coronary artery stenosis [Recovering/Resolving]
